FAERS Safety Report 5565047-0 (Version None)
Quarter: 2007Q4

REPORT INFORMATION
  Report Type: 
  Country: None (occurrence: None)
  Receive Date: 20071218
  Receipt Date: 20071207
  Transmission Date: 20080405
  Serious: Yes (Life-Threatening, Hospitalization)
  Sender: FDA-Public Use
  Company Number: FI-BAXTER-2007BH009788

PATIENT
  Age: 5 Year
  Sex: Male
  Weight: 24 kg

DRUGS (2)
  1. GAMMAGARD LIQUID [Suspect]
     Indication: KAWASAKI'S DISEASE
     Route: 065
     Dates: start: 20070924, end: 20070924
  2. CETIRIZINE HCL [Concomitant]
     Indication: RASH
     Dates: start: 20070923

REACTIONS (4)
  - CHILLS [None]
  - HEART RATE INCREASED [None]
  - PYREXIA [None]
  - TREMOR [None]
